FAERS Safety Report 8612096-1 (Version None)
Quarter: 2012Q3

REPORT INFORMATION
  Report Type: 
  Country: None (occurrence: None)
  Receive Date: 20120822
  Receipt Date: 20120810
  Transmission Date: 20120928
  Serious: Yes (Death)
  Sender: FDA-Public Use
  Company Number: CH-FRI-1000037876

PATIENT
  Age: 45 Year
  Sex: Male
  Weight: 95 kg

DRUGS (9)
  1. GLICLAZIDE [Concomitant]
     Dosage: 30 MG
     Route: 048
     Dates: end: 20120727
  2. INVEGA [Suspect]
     Indication: SCHIZOPHRENIA
     Dosage: 6 MG
     Route: 048
     Dates: start: 20120701, end: 20120727
  3. EZETIMIBE [Concomitant]
     Dosage: 10 MG
     Route: 048
     Dates: end: 20120727
  4. OLANZAPINE [Suspect]
     Dosage: 10 MG
     Route: 048
     Dates: end: 20120727
  5. FLUVOXAMINE MALEATE [Suspect]
     Indication: SCHIZOPHRENIA
     Dosage: 100 MG
     Route: 048
     Dates: end: 20120727
  6. ASPIRIN [Concomitant]
     Dosage: 100 MG
     Route: 048
     Dates: end: 20120727
  7. NEBIVOLOL [Suspect]
     Indication: ESSENTIAL HYPERTENSION
     Dosage: 5 MG
     Route: 048
     Dates: end: 20120727
  8. OLANZAPINE [Suspect]
     Indication: SCHIZOPHRENIA
     Dosage: 30 MG
     Route: 048
  9. ZOCOR [Concomitant]
     Dosage: 40 MG
     Route: 048
     Dates: end: 20120727

REACTIONS (1)
  - SUDDEN DEATH [None]
